APPROVED DRUG PRODUCT: SAPROPTERIN DIHYDROCHLORIDE
Active Ingredient: SAPROPTERIN DIHYDROCHLORIDE
Strength: 100MG
Dosage Form/Route: TABLET;ORAL
Application: A207200 | Product #001 | TE Code: AB
Applicant: PH HEALTH LTD
Approved: May 10, 2019 | RLD: No | RS: No | Type: RX